FAERS Safety Report 22823006 (Version 17)
Quarter: 2025Q3

REPORT INFORMATION
  Report Type: Report from Study
  Country: US (occurrence: US)
  Receive Date: 20230815
  Receipt Date: 20250905
  Transmission Date: 20251021
  Serious: Yes (Other)
  Sender: TAKEDA
  Company Number: US-TAKEDA-2023TUS042336

PATIENT
  Age: 71 Year
  Sex: Male

DRUGS (6)
  1. MARIBAVIR [Suspect]
     Active Substance: MARIBAVIR
     Indication: Epstein-Barr viraemia
     Dosage: 400 MILLIGRAM, BID
     Dates: start: 20230513
  2. MARIBAVIR [Suspect]
     Active Substance: MARIBAVIR
     Dosage: 100 MILLIGRAM, BID
  3. MARIBAVIR [Suspect]
     Active Substance: MARIBAVIR
     Dosage: 200 MILLIGRAM, BID
  4. MARIBAVIR [Suspect]
     Active Substance: MARIBAVIR
     Dosage: UNK UNK, BID
  5. MARIBAVIR [Suspect]
     Active Substance: MARIBAVIR
     Dosage: 600 MILLIGRAM, QD
  6. MARIBAVIR [Suspect]
     Active Substance: MARIBAVIR
     Dosage: 400 MILLIGRAM, BID
     Dates: end: 20250814

REACTIONS (6)
  - Epstein-Barr viraemia [Recovering/Resolving]
  - Haemoglobin decreased [Unknown]
  - Drug effect less than expected [Unknown]
  - Viral load increased [Recovering/Resolving]
  - Off label use [Unknown]
  - Anaemia [Unknown]

NARRATIVE: CASE EVENT DATE: 20230513
